FAERS Safety Report 8483458-0 (Version None)
Quarter: 2012Q3

REPORT INFORMATION
  Report Type: 
  Country: None (occurrence: None)
  Receive Date: 20120702
  Receipt Date: 20120626
  Transmission Date: 20120928
  Serious: Yes (Life-Threatening, Hospitalization, Other)
  Sender: FDA-Public Use
  Company Number: DK-ROCHE-1056381

PATIENT
  Sex: Female
  Weight: 54 kg

DRUGS (1)
  1. XOLAIR [Suspect]
     Indication: HYPERSENSITIVITY
     Route: 058
     Dates: start: 20120327

REACTIONS (6)
  - FEELING HOT [None]
  - DYSPNOEA [None]
  - SWOLLEN TONGUE [None]
  - TYPE I HYPERSENSITIVITY [None]
  - ERYTHEMA [None]
  - CHEST DISCOMFORT [None]
